FAERS Safety Report 8302047-1 (Version None)
Quarter: 2012Q2

REPORT INFORMATION
  Report Type: 
  Country: None (occurrence: None)
  Receive Date: 20120420
  Receipt Date: 20120412
  Transmission Date: 20120825
  Serious: Yes (Hospitalization, Disabling, Other)
  Sender: FDA-Public Use
  Company Number: US-MERCK-1108USA02810

PATIENT
  Age: 74 Year
  Sex: Female
  Weight: 71 kg

DRUGS (6)
  1. VITAMIN E [Concomitant]
     Route: 048
     Dates: start: 19990101
  2. VITAMINS (UNSPECIFIED) [Concomitant]
     Route: 065
     Dates: start: 19970101
  3. FOSAMAX [Suspect]
     Route: 048
     Dates: start: 20080213, end: 20091001
  4. FOSAMAX [Suspect]
     Indication: OSTEOPOROSIS
     Route: 048
     Dates: start: 19970101, end: 20080213
  5. FOSAMAX [Suspect]
     Indication: OSTEOPOROSIS PROPHYLAXIS
     Route: 048
     Dates: start: 19970101, end: 20080213
  6. CALCIUM (UNSPECIFIED) [Concomitant]
     Route: 065
     Dates: start: 19970101

REACTIONS (37)
  - UTERINE PROLAPSE [None]
  - INTERMITTENT CLAUDICATION [None]
  - ATAXIA [None]
  - AORTIC ANEURYSM [None]
  - FALL [None]
  - ABDOMINAL PAIN [None]
  - DIARRHOEA [None]
  - GAIT DISTURBANCE [None]
  - DEMENTIA [None]
  - HIP FRACTURE [None]
  - CONJUNCTIVITIS [None]
  - RHINITIS ALLERGIC [None]
  - DIVERTICULUM [None]
  - DEPRESSION [None]
  - ANXIETY [None]
  - BLADDER PROLAPSE [None]
  - FEMUR FRACTURE [None]
  - ADVERSE EVENT [None]
  - IMPAIRED HEALING [None]
  - PERIPHERAL VASCULAR DISORDER [None]
  - ROAD TRAFFIC ACCIDENT [None]
  - LOW TURNOVER OSTEOPATHY [None]
  - DENTAL CARIES [None]
  - DIZZINESS [None]
  - OSTEOARTHRITIS [None]
  - OROPHARYNGEAL PAIN [None]
  - CAROTID BRUIT [None]
  - HYPONATRAEMIA [None]
  - ILIAC BRUIT [None]
  - BURSITIS [None]
  - RESTLESS LEGS SYNDROME [None]
  - CEREBRAL SMALL VESSEL ISCHAEMIC DISEASE [None]
  - OEDEMA PERIPHERAL [None]
  - INSOMNIA [None]
  - FIBROADENOMA OF BREAST [None]
  - EAR PAIN [None]
  - VITAMIN D DEFICIENCY [None]
